FAERS Safety Report 6243855-0 (Version None)
Quarter: 2009Q2

REPORT INFORMATION
  Report Type: 
  Country: None (occurrence: None)
  Receive Date: 20090623
  Receipt Date: 20090610
  Transmission Date: 20091009
  Serious: Yes (Hospitalization)
  Sender: FDA-Public Use
  Company Number: 234466J08USA

PATIENT
  Age: 38 Year
  Sex: Female

DRUGS (6)
  1. REBIF [Suspect]
     Indication: MULTIPLE SCLEROSIS
     Dosage: 44 MCG, 3 IN 1 WEEKS, SUBCUTANEOUS
     Route: 058
     Dates: start: 20070629
  2. LOPRESSOR [Concomitant]
  3. ZESTRIL [Concomitant]
  4. LEVOTHYROXINE (LEVOTHYROXINE /00068001/) [Concomitant]
  5. EFFEXOR [Concomitant]
  6. NEURONTIN [Concomitant]

REACTIONS (8)
  - BLADDER DISORDER [None]
  - BLADDER INJURY [None]
  - HEAD INJURY [None]
  - LOSS OF CONSCIOUSNESS [None]
  - OVARIAN CYST [None]
  - PAIN IN EXTREMITY [None]
  - PNEUMONIA [None]
  - PULMONARY EMBOLISM [None]
